FAERS Safety Report 5604338-1 (Version None)
Quarter: 2008Q2

REPORT INFORMATION
  Report Type: 
  Country: None (occurrence: None)
  Receive Date: 20080128
  Receipt Date: 20080123
  Transmission Date: 20081010
  Serious: Yes (Hospitalization)
  Sender: FDA-Public Use
  Company Number: D0055835A

PATIENT
  Age: 17 Year
  Sex: Male

DRUGS (3)
  1. SULTANOL [Suspect]
     Route: 055
     Dates: start: 20041201
  2. AERODUR [Concomitant]
     Indication: ASTHMA
     Route: 055
     Dates: start: 20050308
  3. SYMBICORT [Concomitant]
     Indication: ASTHMA
     Route: 055
     Dates: start: 20050308

REACTIONS (1)
  - DEAFNESS UNILATERAL [None]
